FAERS Safety Report 10862351 (Version 3)
Quarter: 2015Q1

REPORT INFORMATION
  Report Type: Report from Study
  Country: CA (occurrence: CA)
  Receive Date: 20150224
  Receipt Date: 20150310
  Transmission Date: 20150721
  Serious: Yes (Hospitalization)
  Sender: FDA-Public Use
  Company Number: CA-CELGENE-CAN-2015022882

PATIENT
  Age: 68 Year
  Sex: Male

DRUGS (19)
  1. GEMCITABINE [Suspect]
     Active Substance: GEMCITABINE\GEMCITABINE HYDROCHLORIDE
     Indication: PRODUCT USED FOR UNKNOWN INDICATION
     Route: 041
     Dates: start: 20150210, end: 20150210
  2. GLICLAZIDE [Concomitant]
     Active Substance: GLICLAZIDE
     Indication: DIABETES MELLITUS
     Dosage: 40 MILLIGRAM
     Route: 065
     Dates: start: 2006
  3. RABEPRAZOLE [Concomitant]
     Active Substance: RABEPRAZOLE
     Indication: GASTROOESOPHAGEAL REFLUX DISEASE
  4. ALLOPURINOL. [Concomitant]
     Active Substance: ALLOPURINOL
     Indication: PROPHYLAXIS
     Route: 065
     Dates: start: 20150210
  5. MAGNESIUM SULFATE. [Concomitant]
     Active Substance: MAGNESIUM SULFATE
     Indication: BLOOD MAGNESIUM DECREASED
  6. RABEPRAZOLE [Concomitant]
     Active Substance: RABEPRAZOLE
     Indication: DYSPEPSIA
  7. RABEPRAZOLE [Concomitant]
     Active Substance: RABEPRAZOLE
     Indication: DYSPEPSIA
     Route: 065
     Dates: start: 2000
  8. ZOFRAN [Concomitant]
     Active Substance: ONDANSETRON HYDROCHLORIDE
     Indication: PROPHYLAXIS OF NAUSEA AND VOMITING
     Route: 065
     Dates: start: 20150210
  9. CISPLATIN. [Suspect]
     Active Substance: CISPLATIN
     Indication: PRODUCT USED FOR UNKNOWN INDICATION
     Route: 041
     Dates: start: 20150210, end: 20150210
  10. RABEPRAZOLE [Concomitant]
     Active Substance: RABEPRAZOLE
     Indication: GASTROOESOPHAGEAL REFLUX DISEASE
  11. MAGNESIUM [Concomitant]
     Active Substance: MAGNESIUM
     Indication: BLOOD MAGNESIUM DECREASED
  12. ROSUVASTATIN [Concomitant]
     Active Substance: ROSUVASTATIN
     Indication: HYPERCHOLESTEROLAEMIA
     Route: 065
     Dates: start: 2002
  13. ROSUVASTATIN [Concomitant]
     Active Substance: ROSUVASTATIN
     Indication: BLOOD CHOLESTEROL INCREASED
  14. APREPITANT. [Concomitant]
     Active Substance: APREPITANT
     Indication: PROPHYLAXIS OF NAUSEA AND VOMITING
     Route: 065
     Dates: start: 20150210
  15. MAGNESIUM SULFATE. [Concomitant]
     Active Substance: MAGNESIUM SULFATE
     Indication: HYPOMAGNESAEMIA
     Route: 065
     Dates: start: 20150204, end: 20150204
  16. MAGNESIUM [Concomitant]
     Active Substance: MAGNESIUM
     Indication: HYPOMAGNESAEMIA
     Route: 065
     Dates: start: 20150205
  17. ISTODAX [Suspect]
     Active Substance: ROMIDEPSIN
     Indication: PRODUCT USED FOR UNKNOWN INDICATION
     Route: 041
     Dates: start: 20150210, end: 20150210
  18. ASA [Concomitant]
     Active Substance: ASPIRIN
     Indication: CARDIOVASCULAR EVENT PROPHYLAXIS
     Route: 065
     Dates: start: 2000
  19. DEXAMETHASONE. [Suspect]
     Active Substance: DEXAMETHASONE
     Indication: PRODUCT USED FOR UNKNOWN INDICATION
     Route: 048
     Dates: start: 20150210, end: 20150210

REACTIONS (1)
  - Small intestinal obstruction [Not Recovered/Not Resolved]

NARRATIVE: CASE EVENT DATE: 20150211
